FAERS Safety Report 23089517 (Version 2)
Quarter: 2023Q4

REPORT INFORMATION
  Report Type: Spontaneous
  Country: US (occurrence: US)
  Receive Date: 20231020
  Receipt Date: 20231120
  Transmission Date: 20240110
  Serious: No
  Sender: FDA-Public Use
  Company Number: US-SANOFI-01808631

PATIENT
  Age: 68 Year
  Sex: Female

DRUGS (24)
  1. DUPIXENT [Suspect]
     Active Substance: DUPILUMAB
     Indication: Asthma
     Dosage: 600 MG, 1X
     Route: 058
     Dates: start: 2022, end: 2022
  2. DUPIXENT [Suspect]
     Active Substance: DUPILUMAB
     Dosage: 300 MG, QOW
     Route: 058
     Dates: start: 2022
  3. LANTUS [Concomitant]
     Active Substance: INSULIN GLARGINE
     Dosage: 40 MG, HS (AT NIGHT)
  4. NOVOLOG [Concomitant]
     Active Substance: INSULIN ASPART
     Dosage: 20 IU, TID (IF NOT ON PREDNISONE)
  5. NOVOLOG [Concomitant]
     Active Substance: INSULIN ASPART
     Dosage: 30 IU, TID (THREE TIMES A DAY 30 IF ON PREDNISONE)
  6. OZEMPIC [Concomitant]
     Active Substance: SEMAGLUTIDE
     Dosage: 25 MG, QW
  7. OXYCODONE [Concomitant]
     Active Substance: OXYCODONE
     Dosage: 10/325, QID
  8. PREDNISONE [Concomitant]
     Active Substance: PREDNISONE
     Dosage: 2.5 MG, QD
  9. PREDNISONE [Concomitant]
     Active Substance: PREDNISONE
     Dosage: 5 MG, QD
  10. AZITHROMYCIN [Concomitant]
     Active Substance: AZITHROMYCIN
     Dosage: UNK, TIW MONDAY, WEDNESDAY, AND FRIDAY)
  11. DILTIAZEM [Concomitant]
     Active Substance: DILTIAZEM
     Dosage: UNK
  12. POTASSIUM [Concomitant]
     Active Substance: POTASSIUM
     Dosage: UNK, QD (DAILY WITH FOOD)
  13. ASPIRIN [Concomitant]
     Active Substance: ASPIRIN
     Dosage: 81 MG, QD
  14. ATORVASTATIN [Concomitant]
     Active Substance: ATORVASTATIN
     Dosage: QD
  15. SPIRONOLACTONE [Concomitant]
     Active Substance: SPIRONOLACTONE
     Dosage: UNK, QD
  16. XARELTO [Concomitant]
     Active Substance: RIVAROXABAN
     Dosage: 20 MG, QD (EVERY EVENING)
  17. FLUTICASONE [Concomitant]
     Active Substance: FLUTICASONE
     Dosage: UNK, BID
  18. LASIX [Concomitant]
     Active Substance: FUROSEMIDE
     Dosage: 40 MG, TID
  19. PANTOPRAZOLE SODIUM [Concomitant]
     Active Substance: PANTOPRAZOLE SODIUM
     Dosage: 40 MG, BID
  20. IBANDRONATE SODIUM [Concomitant]
     Active Substance: IBANDRONATE SODIUM
     Dosage: MONTHLY
  21. METOPROLOL TARTRATE [Concomitant]
     Active Substance: METOPROLOL TARTRATE
     Dosage: 100 MG, QD
  22. DOCUSATE SODIUM [Concomitant]
     Active Substance: DOCUSATE SODIUM
     Dosage: UNK, PRN
  23. SYMBICORT [Concomitant]
     Active Substance: BUDESONIDE\FORMOTEROL FUMARATE DIHYDRATE
     Dosage: 2 DF, BID (TWO PUFFS TWICE A DAY (MORNING AND EVENING)
     Route: 055
  24. SPIRIVA [Concomitant]
     Active Substance: TIOTROPIUM BROMIDE MONOHYDRATE
     Dosage: UNK, QD
     Route: 055

REACTIONS (2)
  - Pain in extremity [Not Recovered/Not Resolved]
  - Product dose omission in error [Unknown]

NARRATIVE: CASE EVENT DATE: 20231107
